FAERS Safety Report 5737063-7 (Version None)
Quarter: 2008Q2

REPORT INFORMATION
  Report Type: 
  Country: None (occurrence: None)
  Receive Date: 20080513
  Receipt Date: 20080513
  Transmission Date: 20081010
  Serious: Yes (Other)
  Sender: FDA-Public Use
  Company Number: None

PATIENT
  Age: 85 Year
  Sex: Female

DRUGS (1)
  1. DIGITEK 0.25MG AMIDE-BERTEK- [Suspect]
     Dosage: 0.25MG DAILY PO
     Route: 048
     Dates: start: 20080321, end: 20080507

REACTIONS (4)
  - DYSGRAPHIA [None]
  - PAIN IN EXTREMITY [None]
  - TREMOR [None]
  - VISUAL DISTURBANCE [None]
